FAERS Safety Report 8270439 (Version 4)
Quarter: 2013Q3

REPORT INFORMATION
  Report Type: Report from Study
  Country: US (occurrence: US)
  Receive Date: 20111201
  Receipt Date: 20130718
  Transmission Date: 20140515
  Serious: Yes (Death)
  Sender: FDA-Public Use
  Company Number: US-ELI_LILLY_AND_COMPANY-US201111006443

PATIENT
  Age: 77 Year
  Sex: Male
  Weight: 71.02 kg

DRUGS (7)
  1. OLANZAPINE LONG-ACTING IM [Suspect]
     Indication: SCHIZOAFFECTIVE DISORDER
     Dosage: 300 MG, 2/M
     Dates: start: 20110304
  2. OLANZAPINE LONG-ACTING IM [Suspect]
     Dosage: 405 MG, UNK
  3. LITHIUM [Concomitant]
     Dosage: 300 MG, BID
     Route: 048
     Dates: start: 20111111
  4. KLONOPIN [Concomitant]
     Dosage: 1 MG, BID
     Dates: start: 20111104
  5. KLONOPIN [Concomitant]
     Dosage: 0.5 MG, BID
     Route: 048
     Dates: start: 20111111
  6. LISINOPRIL [Concomitant]
     Dosage: 20 MG, QD
     Route: 048
     Dates: start: 2008
  7. COGENTIN [Concomitant]
     Dosage: 0.5 MG, BID
     Route: 048
     Dates: start: 2008

REACTIONS (3)
  - Cardiac arrest [Fatal]
  - Coronary artery occlusion [Fatal]
  - Prescribed overdose [Unknown]
